FAERS Safety Report 17908449 (Version 1)
Quarter: 2020Q2

REPORT INFORMATION
  Report Type: Report from Study
  Country: US (occurrence: US)
  Receive Date: 20200617
  Receipt Date: 20200617
  Transmission Date: 20200714
  Serious: Yes (Hospitalization)
  Sender: FDA-Public Use
  Company Number: US-JNJFOC-20200615192

PATIENT

DRUGS (1)
  1. REMICADE [Suspect]
     Active Substance: INFLIXIMAB
     Indication: HIDRADENITIS
     Route: 042

REACTIONS (11)
  - Influenza like illness [Unknown]
  - Headache [Unknown]
  - Off label use [Unknown]
  - Infusion related reaction [Unknown]
  - Myalgia [Unknown]
  - Herpes simplex [Unknown]
  - Urticaria [Unknown]
  - Hypertension [Unknown]
  - Pyrexia [Unknown]
  - Dizziness [Unknown]
  - Product use in unapproved indication [Unknown]
